FAERS Safety Report 12185992 (Version 1)
Quarter: 2016Q1

REPORT INFORMATION
  Report Type: Spontaneous
  Country: US (occurrence: US)
  Receive Date: 20160317
  Receipt Date: 20160317
  Transmission Date: 20160526
  Serious: Yes (Other)
  Sender: FDA-Public Use
  Company Number: US-AMGEN-USASP2016031376

PATIENT
  Sex: Female

DRUGS (1)
  1. PROLIA [Suspect]
     Active Substance: DENOSUMAB
     Indication: PRODUCT USED FOR UNKNOWN INDICATION
     Dosage: UNK
     Route: 065

REACTIONS (7)
  - Systemic lupus erythematosus [Not Recovered/Not Resolved]
  - Raynaud^s phenomenon [Unknown]
  - Myalgia [Unknown]
  - Crohn^s disease [Unknown]
  - Sjogren^s syndrome [Unknown]
  - Bone pain [Not Recovered/Not Resolved]
  - Fibromyalgia [Unknown]
